FAERS Safety Report 6945868-X (Version None)
Quarter: 2010Q3

REPORT INFORMATION
  Report Type: 
  Country: None (occurrence: None)
  Receive Date: 20100824
  Receipt Date: 20100811
  Transmission Date: 20110219
  Serious: Yes (Disabling, Other)
  Sender: FDA-Public Use
  Company Number: GB-ACCORD-005846

PATIENT
  Age: 73 Year
  Sex: Female
  Weight: 63 kg

DRUGS (3)
  1. SIMVASTATIN [Suspect]
     Indication: HYPERLIPIDAEMIA
     Dosage: 40.00-MG-1.00PER / ORAL
     Route: 048
     Dates: end: 20100715
  2. ADCAL-D3(ADCAL-D3) [Concomitant]
  3. PREDNISOLONE [Concomitant]

REACTIONS (1)
  - URTICARIA [None]
